FAERS Safety Report 20141692 (Version 1)
Quarter: 2021Q4

REPORT INFORMATION
  Report Type: Spontaneous
  Country: IT (occurrence: IT)
  Receive Date: 20211202
  Receipt Date: 20211202
  Transmission Date: 20220304
  Serious: Yes (Other)
  Sender: FDA-Public Use
  Company Number: IT-Hikma Pharmaceuticals USA Inc.-IT-H14001-21-04448

PATIENT
  Age: 7 Month
  Sex: Female

DRUGS (11)
  1. ROCURONIUM [Suspect]
     Active Substance: ROCURONIUM BROMIDE
     Indication: General anaesthesia
     Dosage: 1 MG/ KG
  2. FENTANYL [Suspect]
     Active Substance: FENTANYL
     Indication: Maintenance of anaesthesia
     Dosage: 2 MICROGRAM/KILOGRAM
  3. FENTANYL [Suspect]
     Active Substance: FENTANYL
     Indication: General anaesthesia
  4. CISATRACURIUM [Suspect]
     Active Substance: CISATRACURIUM
     Indication: Maintenance of anaesthesia
     Dosage: UNKNOWN
  5. MIDAZOLAM [Suspect]
     Active Substance: MIDAZOLAM
     Indication: Product used for unknown indication
     Dosage: 0.2 MG/KG/H
  6. PROPOFOL [Suspect]
     Active Substance: PROPOFOL
     Indication: General anaesthesia
     Dosage: 3 MG/KG
  7. SEVOFLURANE [Suspect]
     Active Substance: SEVOFLURANE
     Indication: Maintenance of anaesthesia
     Dosage: UNKNOWN
  8. DEXTROSE [Concomitant]
     Active Substance: DEXTROSE
     Indication: Fluid replacement
     Dosage: 4 ML/KG/H
  9. SODIUM CHLORIDE [Concomitant]
     Active Substance: SODIUM CHLORIDE
     Indication: Product used for unknown indication
     Dosage: UNKNOWN
  10. ELECTROLYTES NOS [Concomitant]
     Active Substance: ELECTROLYTES NOS
     Indication: Fluid replacement
     Dosage: UNKNOWN
  11. POTASSIUM [Concomitant]
     Active Substance: POTASSIUM
     Indication: Product used for unknown indication
     Dosage: UNKNOWN

REACTIONS (3)
  - Supraventricular extrasystoles [Recovered/Resolved]
  - Blood potassium decreased [Unknown]
  - Electrocardiogram QT prolonged [Recovered/Resolved]
